FAERS Safety Report 8087788-6 (Version None)
Quarter: 2012Q1

REPORT INFORMATION
  Report Type: 
  Country: None (occurrence: None)
  Receive Date: 20120128
  Receipt Date: 20110606
  Transmission Date: 20120608
  Serious: No
  Sender: FDA-Public Use
  Company Number: US-ABBOTT-11P-163-0730535-00

PATIENT
  Age: 60 Year
  Sex: Female

DRUGS (9)
  1. WELLBUTRIN [Concomitant]
     Indication: DEPRESSION
  2. FOLIC ACID [Concomitant]
     Indication: PRODUCT USED FOR UNKNOWN INDICATION
  3. HUMIRA [Suspect]
     Indication: RHEUMATOID ARTHRITIS
     Dates: start: 20110407
  4. HYDROCHOLOROTHIAZIDE [Concomitant]
     Indication: HYPERTENSION
  5. HYDROCHOLOROTHIAZIDE [Concomitant]
     Indication: FLUID RETENTION
  6. METHOTREXATE [Concomitant]
     Indication: PRODUCT USED FOR UNKNOWN INDICATION
  7. TYLENOL PM [Concomitant]
     Indication: INSOMNIA
     Dosage: AT BEDTIME
  8. XANAX [Concomitant]
     Indication: ANXIETY
  9. FLEXERIL [Concomitant]
     Indication: PRODUCT USED FOR UNKNOWN INDICATION
     Dosage: AT BEDTIME

REACTIONS (1)
  - FATIGUE [None]
